FAERS Safety Report 8323343 (Version 3)
Quarter: 2013Q2

REPORT INFORMATION
  Report Type: Spontaneous
  Country: CA (occurrence: CA)
  Receive Date: 20120105
  Receipt Date: 20130410
  Transmission Date: 20140414
  Serious: Yes (Other)
  Sender: FDA-Public Use
  Company Number: CA-ABBOTT-12P-028-0888394-00

PATIENT
  Sex: Female
  Weight: 49 kg

DRUGS (8)
  1. BIAXIN [Suspect]
     Indication: PRODUCT USED FOR UNKNOWN INDICATION
  2. DILANTIN [Interacting]
     Indication: CONVULSION
     Dosage: AT BEDTIME
     Route: 048
     Dates: start: 197411, end: 1989
  3. DILANTIN [Interacting]
     Indication: POST-TRAUMATIC EPILEPSY
     Route: 048
     Dates: start: 1989, end: 20111027
  4. PHENOBARBITAL [Interacting]
     Indication: PRODUCT USED FOR UNKNOWN INDICATION
     Dosage: AT BEDTIME
     Dates: start: 197411, end: 20111027
  5. CARBOPLATIN [Interacting]
     Indication: CERVIX CARCINOMA
     Dates: start: 201108
  6. MINOCYCLINE [Interacting]
     Indication: PRODUCT USED FOR UNKNOWN INDICATION
     Dates: start: 2011
  7. BACTRIM [Interacting]
     Indication: PRODUCT USED FOR UNKNOWN INDICATION
  8. SYNTHROID [Concomitant]
     Indication: HYPOTHYROIDISM
     Dates: start: 1980

REACTIONS (51)
  - Depression [Unknown]
  - Cholecystitis acute [Recovered/Resolved]
  - Lyme disease [Recovered/Resolved]
  - Cervix carcinoma [Recovered/Resolved]
  - Drop attacks [Recovered/Resolved]
  - Brain injury [Recovered/Resolved]
  - Mental impairment [Recovered/Resolved]
  - Food intolerance [Unknown]
  - Dysphagia [Recovered/Resolved]
  - Somnolence [Recovered/Resolved]
  - Inappropriate affect [Unknown]
  - Hypoaesthesia [Recovered/Resolved]
  - Asthenia [Unknown]
  - Asthenia [Recovered/Resolved]
  - Feeling abnormal [Recovered/Resolved]
  - Incoherent [Recovered/Resolved]
  - Dyskinesia [Recovered/Resolved]
  - Paraesthesia [Recovered/Resolved]
  - Weight decreased [Recovered/Resolved]
  - Drug interaction [Recovered/Resolved]
  - Toxicity to various agents [Recovered/Resolved]
  - Anticonvulsant drug level decreased [Recovered/Resolved]
  - Pain in extremity [Recovered/Resolved]
  - Areflexia [Recovered/Resolved]
  - Vibratory sense increased [Unknown]
  - Hyporeflexia [Recovered/Resolved]
  - Muscular weakness [Recovered/Resolved]
  - Blood pressure decreased [Recovered/Resolved]
  - Personality disorder [Recovered/Resolved]
  - Drug effect increased [Recovered/Resolved]
  - Sleep disorder [Unknown]
  - Nystagmus [Recovered/Resolved]
  - Bradyphrenia [Recovered/Resolved]
  - Fear [Unknown]
  - Drug level decreased [Unknown]
  - Gait disturbance [Recovered/Resolved]
  - Syncope [Unknown]
  - Syncope [Unknown]
  - Sleep-related eating disorder [Unknown]
  - Pain in extremity [Recovered/Resolved]
  - Abnormal sleep-related event [Recovered/Resolved]
  - Anticonvulsant drug level increased [Recovered/Resolved]
  - Crying [Recovered/Resolved]
  - Dysarthria [Recovered/Resolved]
  - Fall [Recovered/Resolved]
  - Increased appetite [Recovered/Resolved]
  - Nausea [Recovered/Resolved]
  - Nervousness [Recovered/Resolved]
  - Obsessive-compulsive disorder [Recovered/Resolved]
  - Speech disorder [Recovered/Resolved]
  - Quality of life decreased [Unknown]
